FAERS Safety Report 25057840 (Version 1)
Quarter: 2025Q1

REPORT INFORMATION
  Report Type: Spontaneous
  Country: US (occurrence: US)
  Receive Date: 20250310
  Receipt Date: 20250310
  Transmission Date: 20250408
  Serious: Yes (Hospitalization)
  Sender: TAKEDA
  Company Number: US-TAKEDA-2025TUS024142

PATIENT
  Sex: Male

DRUGS (2)
  1. LIVTENCITY [Suspect]
     Active Substance: MARIBAVIR
     Indication: Cytomegalovirus infection
     Dosage: 400 MILLIGRAM, BID
     Dates: start: 20240820
  2. LIVTENCITY [Suspect]
     Active Substance: MARIBAVIR
     Indication: Post procedural complication

REACTIONS (1)
  - Peripheral swelling [Unknown]
